FAERS Safety Report 6084069-7 (Version None)
Quarter: 2009Q1

REPORT INFORMATION
  Report Type: 
  Country: None (occurrence: None)
  Receive Date: 20090219
  Receipt Date: 20090211
  Transmission Date: 20090719
  Serious: Yes (Hospitalization)
  Sender: FDA-Public Use
  Company Number: FR-ABBOTT-09P-056-0503157-00

PATIENT
  Sex: Female
  Weight: 47 kg

DRUGS (1)
  1. MONOZECLAR [Suspect]
     Indication: COUGH
     Route: 048
     Dates: start: 20090130, end: 20090201

REACTIONS (1)
  - THROMBOCYTOPENIC PURPURA [None]
